FAERS Safety Report 7112234-6 (Version None)
Quarter: 2010Q4

REPORT INFORMATION
  Report Type: 
  Country: None (occurrence: None)
  Receive Date: 20101119
  Receipt Date: 20100413
  Transmission Date: 20110411
  Serious: No
  Sender: FDA-Public Use
  Company Number: A0854791A

PATIENT
  Age: 73 Year
  Sex: Male

DRUGS (9)
  1. AVODART [Suspect]
     Dosage: .5MG PER DAY
     Route: 048
     Dates: start: 20100312
  2. LIPITOR [Concomitant]
  3. DIOVAN [Concomitant]
  4. COREG [Concomitant]
  5. HYDROCHLOROTHIAZIDE [Concomitant]
  6. BLOOD PRESSURE MEDICATION [Concomitant]
  7. COUMADIN [Concomitant]
  8. TRIAMCINOLONE ACETONIDE [Concomitant]
  9. UNKNOWN MEDICATION [Concomitant]

REACTIONS (5)
  - BLOOD URINE PRESENT [None]
  - EYE PRURITUS [None]
  - HAEMORRHAGE URINARY TRACT [None]
  - LOCAL SWELLING [None]
  - PRURITUS [None]
